FAERS Safety Report 17097802 (Version 2)
Quarter: 2019Q4

REPORT INFORMATION
  Report Type: Report from Study
  Country: MX (occurrence: MX)
  Receive Date: 20191202
  Receipt Date: 20191202
  Transmission Date: 20200122
  Serious: Yes (Other)
  Sender: FDA-Public Use
  Company Number: NVSC2019MX054510

PATIENT
  Sex: Male
  Weight: 70 kg

DRUGS (1)
  1. GALVUS MET [Suspect]
     Active Substance: METFORMIN HYDROCHLORIDE\VILDAGLIPTIN
     Indication: BLOOD GLUCOSE INCREASED
     Dosage: 1 DF, BID (METFORMIN 850 MG, VILDAGLIPTIN 50 MG) (1.5 YEARS AGO)
     Route: 048

REACTIONS (1)
  - Renal failure [Unknown]
